FAERS Safety Report 8841790 (Version 2)
Quarter: 2012Q4

REPORT INFORMATION
  Report Type: 
  Country: FR (occurrence: FR)
  Receive Date: 20121016
  Receipt Date: 20121109
  Transmission Date: 20130627
  Serious: Yes (Life-Threatening, Hospitalization, Other)
  Sender: FDA-Public Use
  Company Number: FR-UCBSA-068608

PATIENT
  Age: 44 Year
  Sex: Female
  Weight: 75 kg

DRUGS (6)
  1. CIMZIA [Suspect]
     Indication: ANKYLOSING SPONDYLITIS
     Route: 058
     Dates: start: 20120831, end: 20120914
  2. CHRONO-INDOCID [Concomitant]
     Indication: ANKYLOSING SPONDYLITIS
     Route: 048
     Dates: start: 20120831
  3. AMLOR [Concomitant]
     Indication: HYPERTENSION
     Route: 048
  4. MOPRAL [Concomitant]
     Indication: GASTROOESOPHAGEAL REFLUX DISEASE
     Route: 048
  5. HYTACAND [Concomitant]
     Route: 048
  6. EFFERALGAN CODEINE [Concomitant]
     Indication: PAIN
     Route: 048

REACTIONS (1)
  - Pulmonary embolism [Recovered/Resolved]
